FAERS Safety Report 12979723 (Version 1)
Quarter: 2016Q4

REPORT INFORMATION
  Report Type: Spontaneous
  Country: NO (occurrence: NO)
  Receive Date: 20161128
  Receipt Date: 20161128
  Transmission Date: 20170207
  Serious: Yes (Life-Threatening, Hospitalization, Other)
  Sender: FDA-Public Use
  Company Number: NO-GLAXOSMITHKLINE-NO2016172251

PATIENT
  Age: 43 Year
  Sex: Female

DRUGS (1)
  1. BENLYSTA [Suspect]
     Active Substance: BELIMUMAB
     Indication: SYSTEMIC LUPUS ERYTHEMATOSUS
     Dosage: 920 MG, UNK, 10 MG/KG. 920 MG ADMINISTERED TWO TIMES: 20160931 AND 20160916.
     Route: 065
     Dates: start: 20160831, end: 20160916

REACTIONS (10)
  - Proteinuria [Recovering/Resolving]
  - Pyrexia [Recovering/Resolving]
  - Liver function test abnormal [Recovering/Resolving]
  - Renal impairment [Recovering/Resolving]
  - Bone marrow failure [Recovering/Resolving]
  - Multiple organ dysfunction syndrome [Recovering/Resolving]
  - Oedema peripheral [Recovering/Resolving]
  - Myalgia [Recovering/Resolving]
  - Pancytopenia [Recovering/Resolving]
  - Muscular weakness [Recovering/Resolving]

NARRATIVE: CASE EVENT DATE: 20160920
